FAERS Safety Report 7856814 (Version 6)
Quarter: 2012Q4

REPORT INFORMATION
  Report Type: 
  Country: JP (occurrence: JP)
  Receive Date: 20110315
  Receipt Date: 20121009
  Transmission Date: 20130627
  Serious: Yes (Death, Hospitalization, Disabling)
  Sender: FDA-Public Use
  Company Number: PHHY2011JP18022

PATIENT
  Age: 82 Year
  Sex: Male
  Weight: 54 kg

DRUGS (3)
  1. EXJADE [Suspect]
     Indication: IRON OVERLOAD
     Dosage: 1000 mg, daily
     Route: 048
     Dates: start: 20101108, end: 20110228
  2. DIART [Concomitant]
     Dosage: 30 mg, UNK
     Route: 048
     Dates: end: 20110322
  3. RED BLOOD CELLS, CONCENTRATED [Concomitant]
     Dosage: 2 U, every week
     Dates: start: 20101108, end: 20110318

REACTIONS (8)
  - Pneumonia [Fatal]
  - Oesophageal obstruction [Recovered/Resolved]
  - Dysphagia [Unknown]
  - Anaemia [Unknown]
  - Fatigue [Unknown]
  - Oesophagitis [Recovering/Resolving]
  - C-reactive protein increased [Unknown]
  - Leukocytosis [Unknown]
